FAERS Safety Report 6101004-3 (Version None)
Quarter: 2009Q1

REPORT INFORMATION
  Report Type: 
  Country: None (occurrence: None)
  Receive Date: 20090220
  Receipt Date: 20081223
  Transmission Date: 20090719
  Serious: Yes (Death)
  Sender: FDA-Public Use
  Company Number: WAES 0810USA05372

PATIENT
  Age: 33 Year
  Sex: Female

DRUGS (14)
  1. PEPCID RPD [Suspect]
     Dosage: PO
     Route: 048
     Dates: end: 20070903
  2. INJ AMPHOTERICIN [Suspect]
     Dosage: 150 MG, IV
     Route: 042
     Dates: start: 20070902, end: 20070903
  3. CIPROFLOXACIN HYDROCHLORIDE [Suspect]
     Dosage: IV
     Route: 042
     Dates: start: 20070831, end: 20070903
  4. VANCOMYCIN [Suspect]
     Dosage: IV
     Route: 042
     Dates: start: 20070831, end: 20070903
  5. ADONA [Concomitant]
  6. BAKTAR [Concomitant]
  7. BIOFERMIN R [Concomitant]
  8. FOY [Concomitant]
  9. ITRIZOLE [Concomitant]
  10. MEDICON [Concomitant]
  11. TRANSAMIN [Concomitant]
  12. BROTIZOLAM [Concomitant]
  13. MORPHINE [Concomitant]
  14. POTASSIUM CHLORIDE [Concomitant]

REACTIONS (11)
  - ALANINE AMINOTRANSFERASE INCREASED [None]
  - ASPARTATE AMINOTRANSFERASE INCREASED [None]
  - BLOOD BILIRUBIN INCREASED [None]
  - BLOOD LACTATE DEHYDROGENASE INCREASED [None]
  - BLOOD UREA DECREASED [None]
  - CONDITION AGGRAVATED [None]
  - GAMMA-GLUTAMYLTRANSFERASE INCREASED [None]
  - HAEMOGLOBIN DECREASED [None]
  - HAEMORRHAGE [None]
  - LIVER DISORDER [None]
  - PLATELET COUNT DECREASED [None]
